FAERS Safety Report 9479217 (Version 2)
Quarter: 2013Q3

REPORT INFORMATION
  Report Type: Spontaneous
  Country: JP (occurrence: JP)
  Receive Date: 20130827
  Receipt Date: 20130827
  Transmission Date: 20140515
  Serious: Yes (Other)
  Sender: FDA-Public Use
  Company Number: JP-B.I. PHARMACEUTICALS,INC./RIDGEFIELD-2013-BI-24492NB

PATIENT
  Age: 85 Year
  Sex: Female

DRUGS (5)
  1. PRAZAXA [Suspect]
     Route: 065
     Dates: start: 201106
  2. DIGOSIN [Concomitant]
     Route: 065
  3. RENIVACE [Concomitant]
     Route: 065
  4. ALDACTONE A [Concomitant]
     Route: 065
  5. WARFARIN [Concomitant]
     Dates: end: 201106

REACTIONS (2)
  - Breast cancer [Unknown]
  - Blood alkaline phosphatase increased [Unknown]
